FAERS Safety Report 6276935-4 (Version None)
Quarter: 2009Q3

REPORT INFORMATION
  Report Type: 
  Country: None (occurrence: None)
  Receive Date: 20090722
  Receipt Date: 20081022
  Transmission Date: 20100115
  Serious: No
  Sender: FDA-Public Use
  Company Number: US-BRISTOL-MYERS SQUIBB COMPANY-14379317

PATIENT
  Age: 82 Year
  Sex: Female
  Weight: 73 kg

DRUGS (9)
  1. COUMADIN [Suspect]
     Indication: MITRAL VALVE DISEASE
     Dates: start: 19950101
  2. CARVEDILOL [Concomitant]
  3. NEXIUM [Concomitant]
  4. ISOSORBIDE MONONITRATE [Concomitant]
  5. POTASSIUM CHLORIDE [Concomitant]
  6. FUROSEMIDE [Concomitant]
  7. BENAZEPRIL HYDROCHLORIDE [Concomitant]
  8. VITAMIN B-12 [Concomitant]
  9. IRON [Concomitant]

REACTIONS (1)
  - INTERNATIONAL NORMALISED RATIO DECREASED [None]
